FAERS Safety Report 19682576 (Version 13)
Quarter: 2025Q2

REPORT INFORMATION
  Report Type: Spontaneous
  Country: FR (occurrence: FR)
  Receive Date: 20210811
  Receipt Date: 20250430
  Transmission Date: 20250716
  Serious: Yes (Hospitalization, Other)
  Sender: JOHNSON AND JOHNSON
  Company Number: FR-JNJFOC-20210812947

PATIENT
  Age: 52 Year
  Sex: Female
  Weight: 46 kg

DRUGS (6)
  1. SIMPONI [Suspect]
     Active Substance: GOLIMUMAB
     Indication: Colitis ulcerative
     Route: 058
     Dates: start: 201904, end: 201910
  2. SIMPONI [Suspect]
     Active Substance: GOLIMUMAB
     Indication: Appendicitis
     Route: 058
     Dates: start: 201910, end: 2020
  3. SIMPONI [Suspect]
     Active Substance: GOLIMUMAB
     Route: 058
     Dates: start: 2020
  4. SIMPONI [Suspect]
     Active Substance: GOLIMUMAB
     Route: 058
     Dates: start: 202004
  5. SIMPONI [Suspect]
     Active Substance: GOLIMUMAB
     Route: 058
     Dates: start: 2019
  6. ESCITALOPRAM OXALATE [Suspect]
     Active Substance: ESCITALOPRAM OXALATE
     Indication: Product used for unknown indication
     Route: 065

REACTIONS (35)
  - Colitis ulcerative [Unknown]
  - Appendicitis [Unknown]
  - Intraductal papillary mucinous neoplasm [Unknown]
  - Drug-induced liver injury [Unknown]
  - Cholestasis [Unknown]
  - Abdominal symptom [Unknown]
  - Incorrect dose administered [Unknown]
  - Off label use [Unknown]
  - Abdominal pain [Unknown]
  - Paraesthesia [Not Recovered/Not Resolved]
  - Sleep disorder [Unknown]
  - Crying [Unknown]
  - Enteritis [Unknown]
  - Myositis [Unknown]
  - Hyperhidrosis [Not Recovered/Not Resolved]
  - Mental disorder [Unknown]
  - Musculoskeletal pain [Unknown]
  - Abnormal faeces [Unknown]
  - Paraesthesia [Not Recovered/Not Resolved]
  - Constipation [Unknown]
  - Carpal tunnel syndrome [Not Recovered/Not Resolved]
  - Back pain [Unknown]
  - Pain [Not Recovered/Not Resolved]
  - Malaise [Unknown]
  - Burning sensation [Not Recovered/Not Resolved]
  - Chills [Unknown]
  - Stress [Unknown]
  - Lipase increased [Unknown]
  - Inappropriate schedule of product administration [Unknown]
  - Pain [Unknown]
  - Product dose omission issue [Unknown]
  - Depression [Unknown]
  - Dyspepsia [Unknown]
  - Neurological symptom [Unknown]
  - Abdominal discomfort [Recovering/Resolving]

NARRATIVE: CASE EVENT DATE: 20190401
